FAERS Safety Report 8432152-0 (Version None)
Quarter: 2012Q2

REPORT INFORMATION
  Report Type: 
  Country: None (occurrence: None)
  Receive Date: 20120613
  Receipt Date: 20120604
  Transmission Date: 20120825
  Serious: Yes (Other)
  Sender: FDA-Public Use
  Company Number: PHHY2012MX041134

PATIENT
  Sex: Female

DRUGS (7)
  1. EDIPRESS [Concomitant]
     Indication: HYPERTENSION
     Dosage: UNK UKN, UNK
     Dates: start: 20100501
  2. METFORMIN HCL [Concomitant]
     Indication: DIABETES MELLITUS
     Dosage: 1 TABLET (500 MG) DAILY
  3. EVIPRESS [Concomitant]
     Dosage: 1 TABLET A DAY
  4. LIPITOR [Concomitant]
     Indication: BLOOD CHOLESTEROL INCREASED
     Dosage: 1 TABLET A DAY
  5. GLYBURIDE [Concomitant]
     Indication: DIABETES MELLITUS
     Dosage: 3 TABLETS (5 MG) DAILY
  6. LEVOTHYROXINE SODIUM [Concomitant]
     Indication: NECK MASS
     Dosage: 1 TABLET A DAY
  7. DIOVAN [Suspect]
     Indication: HYPERTENSION
     Dosage: 160 MG, DAILY
     Dates: start: 20091201

REACTIONS (4)
  - PHOTOPSIA [None]
  - DIABETIC NEUROPATHY [None]
  - ARTHRALGIA [None]
  - BLOOD PRESSURE INADEQUATELY CONTROLLED [None]
